FAERS Safety Report 8251521-5 (Version None)
Quarter: 2012Q1

REPORT INFORMATION
  Report Type: 
  Country: None (occurrence: None)
  Receive Date: 20120322
  Receipt Date: 20120228
  Transmission Date: 20120608
  Serious: Yes (Hospitalization)
  Sender: FDA-Public Use
  Company Number: UTC-015897

PATIENT
  Age: 16 Year
  Sex: Female
  Weight: 55.9 kg

DRUGS (4)
  1. TYVASO [Suspect]
  2. LETAIRIS [Concomitant]
  3. TYVASO [Suspect]
     Indication: COR PULMONALE CHRONIC
     Dosage: 216 MCG (54 MCG, 4 IN 1 D), INHALATION
     Route: 055
     Dates: start: 20100216
  4. REVATIO [Concomitant]

REACTIONS (1)
  - PNEUMONIA [None]
